FAERS Safety Report 5682471-6 (Version None)
Quarter: 2008Q1

REPORT INFORMATION
  Report Type: 
  Country: None (occurrence: None)
  Receive Date: 20080326
  Receipt Date: 20080326
  Transmission Date: 20080703
  Serious: Yes (Hospitalization)
  Sender: FDA-Public Use
  Company Number: None

PATIENT
  Age: 49 Year
  Sex: Female
  Weight: 52.5 kg

DRUGS (9)
  1. AMBIEN [Suspect]
     Indication: INSOMNIA
     Dosage: 10MG 25/4 DAYS PO
     Route: 048
     Dates: start: 20080105, end: 20080109
  2. PERCOCET [Suspect]
     Indication: PAIN
     Dosage: 5/500 33/2 DAYS PO
     Route: 048
     Dates: start: 20080107, end: 20080109
  3. ATIVAN [Concomitant]
  4. BENADRYL [Concomitant]
  5. COLACE [Concomitant]
  6. LOVENOX [Concomitant]
  7. ZANTAC [Concomitant]
  8. SENNA [Concomitant]
  9. HYDROCODONE BITARTRATE [Concomitant]

REACTIONS (3)
  - BLOOD ALKALINE PHOSPHATASE INCREASED [None]
  - INCORRECT DOSE ADMINISTERED [None]
  - LETHARGY [None]
